FAERS Safety Report 24416375 (Version 1)
Quarter: 2024Q4

REPORT INFORMATION
  Report Type: Spontaneous
  Country: CH (occurrence: CH)
  Receive Date: 20241009
  Receipt Date: 20241009
  Transmission Date: 20250115
  Serious: Yes (Hospitalization)
  Sender: PFIZER
  Company Number: None

PATIENT
  Age: 52 Year
  Sex: Female

DRUGS (3)
  1. LORAZEPAM [Suspect]
     Active Substance: LORAZEPAM
     Dosage: 14 MG
     Dates: start: 20230305
  2. AKINETON [Suspect]
     Active Substance: BIPERIDEN HYDROCHLORIDE
     Dosage: APPROXIMATELY 44 X 2 MG TAKEN
     Dates: start: 20230305
  3. HALDOL [Suspect]
     Active Substance: HALOPERIDOL
     Dosage: APPROX. 12 X 10 MG TAKEN
     Dates: start: 20230305

REACTIONS (3)
  - Intentional overdose [Unknown]
  - Depressed level of consciousness [Unknown]
  - Cyanosis [Unknown]

NARRATIVE: CASE EVENT DATE: 20230305
